FAERS Safety Report 6986412-0 (Version None)
Quarter: 2010Q3

REPORT INFORMATION
  Report Type: 
  Country: None (occurrence: None)
  Receive Date: 20100915
  Receipt Date: 20090702
  Transmission Date: 20110219
  Serious: No
  Sender: FDA-Public Use
  Company Number: US-WYE-H10042309

PATIENT
  Sex: Female

DRUGS (7)
  1. PRISTIQ [Suspect]
     Indication: ANXIETY
     Dosage: TITRATED UP TO 100 MG DAILY
     Route: 048
     Dates: start: 20090521, end: 20090101
  2. PRISTIQ [Suspect]
     Route: 048
     Dates: start: 20090101
  3. CRESTOR [Concomitant]
  4. VALIUM [Concomitant]
  5. NEXIUM [Concomitant]
  6. INSULIN [Concomitant]
  7. CELEXA [Concomitant]

REACTIONS (2)
  - CONDITION AGGRAVATED [None]
  - DIABETES MELLITUS [None]
